FAERS Safety Report 10523974 (Version 1)
Quarter: 2014Q4

REPORT INFORMATION
  Report Type: Spontaneous
  Country: US (occurrence: None)
  Receive Date: 20141015
  Receipt Date: 20141015
  Transmission Date: 20150528
  Serious: Yes (Death)
  Sender: FDA-Public Use
  Company Number: None

PATIENT
  Age: 78 Year
  Sex: Female

DRUGS (10)
  1. LOVOTHYROXINO(LEVOTHYROID/SYNTHROID) [Concomitant]
  2. PRADAXA [Concomitant]
     Active Substance: DABIGATRAN ETEXILATE MESYLATE
  3. LOVASTATIN(MEVACOR) [Concomitant]
  4. IBUPROFEN(MOTRIN) [Concomitant]
  5. CARBIDOPA-LEVODOPA(SINEMET) [Concomitant]
  6. FLOUOXETINE(PROZAC) [Concomitant]
  7. REVLIMID [Suspect]
     Active Substance: LENALIDOMIDE
     Indication: DIFFUSE LARGE B-CELL LYMPHOMA
     Dosage: DAILY X21D/28 D ORALLY
     Route: 048
     Dates: start: 20140822, end: 20141002
  8. ASPIRIN. [Concomitant]
     Active Substance: ASPIRIN
  9. BISOPROLOL(ZEBETA) [Concomitant]
  10. SCOPOLAMINE BASE(TRANSDERM-SCOP) [Concomitant]

REACTIONS (3)
  - Fall [None]
  - Parkinson^s disease [None]
  - Dementia [None]

NARRATIVE: CASE EVENT DATE: 20141002
